FAERS Safety Report 16269027 (Version 1)
Quarter: 2019Q2

REPORT INFORMATION
  Report Type: Report from Study
  Country: US (occurrence: US)
  Receive Date: 20190503
  Receipt Date: 20190503
  Transmission Date: 20190711
  Serious: Yes (Hospitalization, Other)
  Sender: FDA-Public Use
  Company Number: US-ROCHE-2310252

PATIENT
  Age: 50 Year
  Sex: Female

DRUGS (37)
  1. METOPROLOL. [Concomitant]
     Active Substance: METOPROLOL
  2. GLYCOPYRROLATE [GLYCOPYRRONIUM BROMIDE] [Concomitant]
  3. HYDRALAZINE [Concomitant]
     Active Substance: HYDRALAZINE HYDROCHLORIDE
  4. FAMOTIDINE. [Concomitant]
     Active Substance: FAMOTIDINE
  5. SEVELAMER [Concomitant]
     Active Substance: SEVELAMER
  6. FOLIC ACID. [Concomitant]
     Active Substance: FOLIC ACID
  7. FUROSEMIDE. [Concomitant]
     Active Substance: FUROSEMIDE
  8. FENTANYL. [Concomitant]
     Active Substance: FENTANYL
  9. CEFAZOLINE [CEFAZOLIN] [Concomitant]
     Active Substance: CEFAZOLIN
  10. DIPHENHYDRAMINE. [Concomitant]
     Active Substance: DIPHENHYDRAMINE
  11. CASTOR OIL. [Concomitant]
     Active Substance: CASTOR OIL
  12. DEXTROSE;SODIUM CHLORIDE [Concomitant]
  13. MYCOPHENOLATE MOFETIL. [Suspect]
     Active Substance: MYCOPHENOLATE MOFETIL
     Indication: DELAYED GRAFT FUNCTION
     Route: 065
  14. MIDAZOLAM [Concomitant]
     Active Substance: MIDAZOLAM HYDROCHLORIDE
  15. LACTULOSE. [Concomitant]
     Active Substance: LACTULOSE
  16. CALCIUM GLUCONATE. [Concomitant]
     Active Substance: CALCIUM GLUCONATE
  17. BACTRIM [Concomitant]
     Active Substance: SULFAMETHOXAZOLE\TRIMETHOPRIM
  18. ACETAMINOPHEN W/OXYCODONE [Concomitant]
     Active Substance: ACETAMINOPHEN\OXYCODONE HYDROCHLORIDE
  19. METOPROLOL. [Concomitant]
     Active Substance: METOPROLOL
  20. METHYLPREDISOLONE [Concomitant]
     Active Substance: METHYLPREDNISOLONE
  21. BLINDED QPI-1002 [Suspect]
     Active Substance: TEPRASIRAN
     Indication: DELAYED GRAFT FUNCTION
     Route: 042
  22. SENSIPAR [Concomitant]
     Active Substance: CINACALCET HYDROCHLORIDE
  23. NEOSTIGMINE. [Concomitant]
     Active Substance: NEOSTIGMINE METHYLSULFATE
  24. HEPARIN [Concomitant]
     Active Substance: HEPARIN SODIUM
  25. DOCUSATE SODIUM;SENNA [Concomitant]
     Active Substance: DOCUSATE SODIUM\SENNOSIDES
  26. DILTIZEM [Concomitant]
  27. HYDROMORPHONE [Concomitant]
     Active Substance: HYDROMORPHONE
  28. CLOTRIMAZOLE. [Concomitant]
     Active Substance: CLOTRIMAZOLE
  29. ACETAMINOPHEN. [Concomitant]
     Active Substance: ACETAMINOPHEN
  30. VALGANCICLOVIR. [Concomitant]
     Active Substance: VALGANCICLOVIR
  31. RED BLOOD CELLS, CONCENTRATED [Concomitant]
     Active Substance: HUMAN RED BLOOD CELL
  32. TACROLIMUS. [Concomitant]
     Active Substance: TACROLIMUS
  33. PREDNISOLONE. [Concomitant]
     Active Substance: PREDNISOLONE
  34. ROCURONIUM BROMIDE. [Concomitant]
     Active Substance: ROCURONIUM BROMIDE
  35. ONDANSETRON [Concomitant]
     Active Substance: ONDANSETRON
  36. RENVELA [Concomitant]
     Active Substance: SEVELAMER CARBONATE
  37. THYMOGLOBULIN [Concomitant]
     Active Substance: LAPINE T-LYMPHOCYTE IMMUNE GLOBULIN

REACTIONS (2)
  - Viraemia [Recovered/Resolved]
  - Delayed graft function [Recovered/Resolved]

NARRATIVE: CASE EVENT DATE: 20161004
